FAERS Safety Report 5386767-7 (Version None)
Quarter: 2007Q3

REPORT INFORMATION
  Report Type: 
  Country: None (occurrence: None)
  Receive Date: 20070713
  Receipt Date: 20070705
  Transmission Date: 20080115
  Serious: Yes (Other)
  Sender: FDA-Public Use
  Company Number: GB-PFIZER INC-2006103128

PATIENT
  Sex: Female
  Weight: 49.1 kg

DRUGS (10)
  1. PREGABALIN [Suspect]
     Indication: NEURALGIA
     Route: 048
     Dates: start: 20060613, end: 20060615
  2. AMITRIPTYLINE HCL [Concomitant]
  3. ASPIRIN [Concomitant]
  4. BECLOMETHASONE DIPROPIONATE [Concomitant]
     Route: 055
  5. BENDROFLUAZIDE [Concomitant]
  6. DILTIAZEM [Concomitant]
  7. DIPYRIDAMOLE [Concomitant]
  8. ISOSORBIDE MONONITRATE [Concomitant]
  9. PRAVASTATIN [Concomitant]
  10. IPRATROPIUM BROMIDE [Concomitant]
     Route: 055

REACTIONS (1)
  - CEREBELLAR ATAXIA [None]
